FAERS Safety Report 4829395-1 (Version None)
Quarter: 2005Q4

REPORT INFORMATION
  Report Type: 
  Country: None (occurrence: None)
  Receive Date: 20051028
  Receipt Date: 20050429
  Transmission Date: 20060501
  Serious: No
  Sender: FDA-Public Use
  Company Number: US130213

PATIENT
  Age: 47 Year
  Sex: Male

DRUGS (13)
  1. SENSIPAR [Suspect]
     Indication: HYPERPARATHYROIDISM SECONDARY
     Dosage: 60 MG, 1 IN 1 DAYS
     Dates: start: 20050325
  2. EPOGEN (EPOETIN ALFA) (EPOETIN ALFA) [Concomitant]
  3. SEVELAMER HCL [Concomitant]
  4. AMITRIPTYLINE HCL [Concomitant]
  5. ALPRAZOLAM [Concomitant]
  6. MELATONIN [Concomitant]
  7. CHLORPROMAZINE HCL [Concomitant]
  8. FOLIC ACID [Concomitant]
  9. CLONIDINE [Concomitant]
  10. VALPROATE SODIUM [Concomitant]
  11. PROPRANOLOL [Concomitant]
  12. MINOXIDIL [Concomitant]
  13. AMLODIPINE BESYLATE [Concomitant]

REACTIONS (2)
  - HYPOAESTHESIA [None]
  - PARAESTHESIA [None]
